FAERS Safety Report 24445996 (Version 1)
Quarter: 2024Q4

REPORT INFORMATION
  Report Type: Spontaneous
  Country: US (occurrence: None)
  Receive Date: 20241016
  Receipt Date: 20241016
  Transmission Date: 20250114
  Serious: No
  Sender: Public
  Company Number: None

PATIENT
  Age: 56 Year
  Sex: Female

DRUGS (8)
  1. XIIDRA [Suspect]
     Active Substance: LIFITEGRAST
     Indication: Dry eye
     Dosage: OTHER QUANTITY : 1 DROP(S);?FREQUENCY : TWICE A DAY;?
     Route: 047
     Dates: start: 20240831
  2. DYAZIDE [Concomitant]
     Active Substance: HYDROCHLOROTHIAZIDE\TRIAMTERENE
  3. METOPROLOL [Concomitant]
     Active Substance: METOPROLOL
  4. B12 [Concomitant]
  5. VITAMIN D3 [Concomitant]
     Active Substance: CHOLECALCIFEROL
  6. Milk thistle [Concomitant]
  7. probiotic [Concomitant]
  8. BIOTIN [Concomitant]

REACTIONS (9)
  - Dysgeusia [None]
  - Parosmia [None]
  - Nasopharyngitis [None]
  - Sinusitis [None]
  - Taste disorder [None]
  - Burning sensation [None]
  - Pain [None]
  - Product substitution issue [None]
  - Vision blurred [None]
